FAERS Safety Report 20079095 (Version 1)
Quarter: 2021Q4

REPORT INFORMATION
  Report Type: Spontaneous
  Country: US (occurrence: US)
  Receive Date: 20211117
  Receipt Date: 20211117
  Transmission Date: 20220304
  Serious: No
  Sender: FDA-Public Use
  Company Number: US-CELGENE-USA-20211102556

PATIENT
  Sex: Female

DRUGS (2)
  1. ZEPOSIA [Suspect]
     Active Substance: OZANIMOD HYDROCHLORIDE
     Indication: Multiple sclerosis
     Route: 048
  2. BAYER LOW DOSE [Concomitant]
     Active Substance: ASPIRIN
     Indication: Product used for unknown indication
     Route: 065

REACTIONS (5)
  - Blood pressure abnormal [Not Recovered/Not Resolved]
  - Pain in jaw [Unknown]
  - Chest pain [Not Recovered/Not Resolved]
  - Palpitations [Unknown]
  - Fatigue [Unknown]
